FAERS Safety Report 17684863 (Version 1)
Quarter: 2020Q2

REPORT INFORMATION
  Report Type: Report from Study
  Country: ES (occurrence: ES)
  Receive Date: 20200420
  Receipt Date: 20200420
  Transmission Date: 20200714
  Serious: Yes (Hospitalization)
  Sender: FDA-Public Use
  Company Number: ES-TEVA-2020-ES-1225353

PATIENT
  Age: 76 Year
  Sex: Male

DRUGS (6)
  1. PRAVASTATINA SODICA (7192SO) [Concomitant]
     Active Substance: PRAVASTATIN SODIUM
     Indication: DYSLIPIDAEMIA
     Dates: start: 20110708
  2. PARACETAMOL (12A) [Concomitant]
     Active Substance: ACETAMINOPHEN
     Indication: ARTHRALGIA
     Dates: start: 20121018
  3. ENALAPRIL MALEATO (2142MA) [Concomitant]
     Active Substance: ENALAPRIL MALEATE
     Indication: HYPERTENSION
     Dates: start: 20160113
  4. TRAMADOL HIDROCLORURO (2389CH) [Suspect]
     Active Substance: TRAMADOL
     Indication: ARTHRALGIA
     Dosage: 50 MG
     Route: 048
     Dates: start: 20121015
  5. IBUPROFENO (1769A) [Interacting]
     Active Substance: IBUPROFEN
     Indication: TOOTHACHE
     Dosage: 1.6 GM
     Route: 048
     Dates: start: 20171201, end: 20171207
  6. ARTEDIL 20 MG COMPRIMIDOS, 28 COMPRIMIDOS [Concomitant]
     Indication: HYPERTENSION
     Dates: start: 20120125

REACTIONS (2)
  - Drug interaction [Unknown]
  - Lower gastrointestinal haemorrhage [Recovered/Resolved]

NARRATIVE: CASE EVENT DATE: 20171205
